FAERS Safety Report 9821537 (Version 1)
Quarter: 2014Q1

REPORT INFORMATION
  Report Type: Spontaneous
  Country: US (occurrence: US)
  Receive Date: 20140116
  Receipt Date: 20140116
  Transmission Date: 20141002
  Serious: Yes (Hospitalization, Other)
  Sender: FDA-Public Use
  Company Number: US-AMGEN-USASP2014002511

PATIENT
  Age: 60 Year
  Sex: Female
  Weight: 81.63 kg

DRUGS (9)
  1. ENBREL [Suspect]
     Indication: PSORIATIC ARTHROPATHY
     Dosage: UNK
     Route: 065
     Dates: end: 2012
  2. HUMIRA [Suspect]
     Indication: PSORIATIC ARTHROPATHY
     Dosage: UNK
     Route: 065
     Dates: end: 2012
  3. REMICADE [Suspect]
     Indication: PSORIATIC ARTHROPATHY
     Dosage: 8 MG/KG, UNK
     Route: 042
  4. OXYCODONE [Suspect]
     Indication: PAIN MANAGEMENT
     Dosage: UNK
     Route: 065
  5. EFFEXOR [Suspect]
     Indication: PAIN MANAGEMENT
     Dosage: UNK
     Route: 065
  6. FENTANYL [Suspect]
     Indication: PAIN IN EXTREMITY
     Dosage: UNK
     Route: 062
     Dates: start: 2007
  7. AMITRIPTYLINE [Suspect]
     Indication: PAIN MANAGEMENT
     Dosage: UNK
     Route: 065
  8. AMBIEN [Suspect]
     Indication: PAIN MANAGEMENT
     Dosage: UNK
     Route: 065
  9. METHOTREXATE [Concomitant]
     Dosage: UNK

REACTIONS (4)
  - Cerebrovascular accident [Recovered/Resolved]
  - Cataract [Not Recovered/Not Resolved]
  - Osteomyelitis [Unknown]
  - Nasopharyngitis [Not Recovered/Not Resolved]
